FAERS Safety Report 9302557 (Version 1)
Quarter: 2013Q2

REPORT INFORMATION
  Report Type: Spontaneous
  Country: GB (occurrence: None)
  Receive Date: 20130517
  Receipt Date: 20130517
  Transmission Date: 20140414
  Serious: Yes (Hospitalization, Other)
  Sender: FDA-Public Use
  Company Number: AUR-APL-2013-03894

PATIENT
  Age: 84 Year
  Sex: Female

DRUGS (11)
  1. MOXONIDINE (MOXONIDINE) [Concomitant]
  2. PARACETAMOL (PARACETAMOL) [Concomitant]
  3. SALBUTAMOL (SALBUTAMOL) [Concomitant]
  4. SERETIDE (SERETIDE) [Concomitant]
  5. TIOTROPIUM (TIOTROPIUM) [Concomitant]
  6. WARFARIN (WARFARIN) [Concomitant]
  7. SERTRALINE (SERTRALINE) (SERTRALINE) [Suspect]
     Indication: ANXIETY
     Route: 048
     Dates: start: 20130412, end: 20130418
  8. BISOPROLOL (BISOPROLOL) [Concomitant]
  9. DIGOXIN (DIGOXIN) [Concomitant]
  10. DOXAZOSIN (DOXAZOSIN) [Concomitant]
  11. FYBOGEL [Concomitant]

REACTIONS (3)
  - Tremor [None]
  - Balance disorder [None]
  - Mobility decreased [None]
